FAERS Safety Report 7156423-3 (Version None)
Quarter: 2010Q4

REPORT INFORMATION
  Report Type: 
  Country: None (occurrence: None)
  Receive Date: 20101214
  Receipt Date: 20101208
  Transmission Date: 20110411
  Serious: Yes (Life-Threatening)
  Sender: FDA-Public Use
  Company Number: FR-ROCHE-747085

PATIENT
  Age: 53 Year
  Sex: Male

DRUGS (7)
  1. VALIUM [Suspect]
     Route: 048
     Dates: start: 20100831
  2. VALIUM [Interacting]
     Dosage: DECREASED.
     Route: 048
     Dates: start: 20100904
  3. VALIUM [Interacting]
     Dosage: DOSAGE INCREASED.
     Route: 048
     Dates: start: 20100905
  4. VALIUM [Interacting]
     Route: 048
     Dates: start: 20100905
  5. VALIUM [Interacting]
     Route: 048
     Dates: start: 20100905
  6. LIORESAL [Interacting]
     Route: 048
     Dates: start: 20100601
  7. LIORESAL [Interacting]
     Dosage: DOSAGE INCREASED.
     Route: 048
     Dates: start: 20100807, end: 20100904

REACTIONS (5)
  - BRADYPNOEA [None]
  - DISTURBANCE IN ATTENTION [None]
  - DRUG INTERACTION [None]
  - HALLUCINATION, VISUAL [None]
  - HYPOXIA [None]
